FAERS Safety Report 4579286-9 (Version None)
Quarter: 2005Q1

REPORT INFORMATION
  Report Type: 
  Country: None (occurrence: None)
  Receive Date: 20050209
  Receipt Date: 20050127
  Transmission Date: 20050727
  Serious: Yes (Hospitalization)
  Sender: FDA-Public Use
  Company Number: 2005AC00158

PATIENT
  Sex: Male

DRUGS (1)
  1. CRESTOR [Suspect]
     Dates: start: 20031201, end: 20050101

REACTIONS (1)
  - BRONCHIOLITIS [None]
